FAERS Safety Report 7770532-7 (Version None)
Quarter: 2011Q3

REPORT INFORMATION
  Report Type: 
  Country: None (occurrence: None)
  Receive Date: 20110922
  Receipt Date: 20110428
  Transmission Date: 20111222
  Serious: No
  Sender: FDA-Public Use
  Company Number: US-ASTRAZENECA-2011SE24859

PATIENT
  Age: 16611 Day
  Sex: Female

DRUGS (2)
  1. SEROQUEL [Suspect]
     Route: 048
  2. SEROQUEL [Suspect]
     Dosage: SPLITTING IN HALF
     Route: 048

REACTIONS (4)
  - TOOTH ABSCESS [None]
  - ANXIETY [None]
  - NERVOUSNESS [None]
  - INCORRECT DOSE ADMINISTERED [None]
